FAERS Safety Report 4980749-2 (Version None)
Quarter: 2006Q2

REPORT INFORMATION
  Report Type: 
  Country: None (occurrence: None)
  Receive Date: 20060424
  Receipt Date: 20050107
  Transmission Date: 20061013
  Serious: Yes (Hospitalization)
  Sender: FDA-Public Use
  Company Number: US-MERCK-0501USA02681

PATIENT
  Age: 53 Year
  Sex: Female
  Weight: 123 kg

DRUGS (1)
  1. VIOXX [Suspect]
     Indication: ARTHRITIS
     Route: 048
     Dates: start: 20000101, end: 20040901

REACTIONS (14)
  - ABDOMINAL PAIN [None]
  - ADVERSE EVENT [None]
  - ANOSMIA [None]
  - CARDIAC DISORDER [None]
  - CHEST DISCOMFORT [None]
  - DEEP VEIN THROMBOSIS [None]
  - DYSPNOEA [None]
  - FALL [None]
  - HEADACHE [None]
  - LUNG DISORDER [None]
  - MENINGIOMA [None]
  - OEDEMA PERIPHERAL [None]
  - PAIN IN EXTREMITY [None]
  - VISUAL DISTURBANCE [None]
